FAERS Safety Report 15475785 (Version 1)
Quarter: 2018Q4

REPORT INFORMATION
  Report Type: Report from Study
  Country: ES (occurrence: ES)
  Receive Date: 20181009
  Receipt Date: 20181009
  Transmission Date: 20190205
  Serious: Yes (Life-Threatening, Other)
  Sender: FDA-Public Use
  Company Number: ES-AUROBINDO-AUR-APL-2018-002088

PATIENT

DRUGS (3)
  1. OXALIPLATIN. [Suspect]
     Active Substance: OXALIPLATIN
     Indication: METASTASES TO LIVER
  2. OXALIPLATIN. [Suspect]
     Active Substance: OXALIPLATIN
     Indication: COLORECTAL CANCER METASTATIC
     Dosage: CYCLICAL
     Route: 065
  3. RALTITREXED [Concomitant]
     Active Substance: RALTITREXED
     Indication: METASTASES TO LIVER
     Dosage: CYCLICAL
     Route: 065

REACTIONS (2)
  - Venoocclusive liver disease [Unknown]
  - Biloma [Unknown]
